FAERS Safety Report 18762830 (Version 21)
Quarter: 2025Q1

REPORT INFORMATION
  Report Type: Report from Study
  Country: US (occurrence: US)
  Receive Date: 20210120
  Receipt Date: 20250124
  Transmission Date: 20250408
  Serious: Yes (Other)
  Sender: TAKEDA
  Company Number: US-TAKEDA-US202003872

PATIENT
  Age: 57 Year
  Sex: Female
  Weight: 104 kg

DRUGS (40)
  1. HUMAN IMMUNOGLOBULIN G [Suspect]
     Active Substance: HUMAN IMMUNOGLOBULIN G
     Indication: Primary immunodeficiency syndrome
     Dosage: 38 GRAM, Q2WEEKS
  2. HUMAN IMMUNOGLOBULIN G [Suspect]
     Active Substance: HUMAN IMMUNOGLOBULIN G
     Indication: Immunodeficiency common variable
  3. HUMAN IMMUNOGLOBULIN G [Suspect]
     Active Substance: HUMAN IMMUNOGLOBULIN G
     Dosage: 36 GRAM, Q2WEEKS
     Dates: start: 20230203
  4. HUMAN IMMUNOGLOBULIN G [Suspect]
     Active Substance: HUMAN IMMUNOGLOBULIN G
     Dosage: 36 GRAM, Q2WEEKS
  5. HUMAN IMMUNOGLOBULIN G [Suspect]
     Active Substance: HUMAN IMMUNOGLOBULIN G
     Dosage: 38 GRAM, Q2WEEKS
  6. ADVAIR HFA [Suspect]
     Active Substance: FLUTICASONE PROPIONATE\SALMETEROL XINAFOATE
     Indication: Product used for unknown indication
  7. ACETAMINOPHEN [Concomitant]
     Active Substance: ACETAMINOPHEN
  8. CARVEDILOL [Concomitant]
     Active Substance: CARVEDILOL
  9. FAMOTIDINE [Concomitant]
     Active Substance: FAMOTIDINE
  10. PREGABALIN [Concomitant]
     Active Substance: PREGABALIN
  11. VITAMIN C [Concomitant]
     Active Substance: ASCORBIC ACID
  12. CHONDROITIN SULFATE (BOVINE)\GLUCOSAMINE HYDROCHLORIDE [Concomitant]
     Active Substance: CHONDROITIN SULFATE (BOVINE)\GLUCOSAMINE HYDROCHLORIDE
  13. GLIPIZIDE [Concomitant]
     Active Substance: GLIPIZIDE
  14. DICLOFENAC SODIUM [Concomitant]
     Active Substance: DICLOFENAC SODIUM
  15. VALACYCLOVIR [Concomitant]
     Active Substance: VALACYCLOVIR HYDROCHLORIDE
  16. EPINEPHRINE [Concomitant]
     Active Substance: EPINEPHRINE
  17. HYDROCHLOROTHIAZIDE\TRIAMTERENE [Concomitant]
     Active Substance: HYDROCHLOROTHIAZIDE\TRIAMTERENE
  18. LOSARTAN POTASSIUM [Concomitant]
     Active Substance: LOSARTAN POTASSIUM
  19. VITAMIN D3 [Concomitant]
     Active Substance: CHOLECALCIFEROL
  20. ALBUTEROL SULFATE [Concomitant]
     Active Substance: ALBUTEROL SULFATE
  21. ROSUVASTATIN CALCIUM [Concomitant]
     Active Substance: ROSUVASTATIN CALCIUM
  22. FISH OIL [Concomitant]
     Active Substance: FISH OIL
  23. FLUTICASONE PROPIONATE [Concomitant]
     Active Substance: FLUTICASONE PROPIONATE
  24. MONTELUKAST SODIUM [Concomitant]
     Active Substance: MONTELUKAST SODIUM
  25. BUPROPION [Concomitant]
     Active Substance: BUPROPION
  26. ALBUTEROL SULFATE [Concomitant]
     Active Substance: ALBUTEROL SULFATE
  27. LEVOTHYROXINE [Concomitant]
     Active Substance: LEVOTHYROXINE
  28. LIDOCAINE [Concomitant]
     Active Substance: LIDOCAINE
  29. STOOL SOFTENER (DOCUSATE) [Concomitant]
     Active Substance: DOCUSATE
  30. UNSPECIFIED INGREDIENT [Concomitant]
     Active Substance: UNSPECIFIED INGREDIENT
  31. Lmx [Concomitant]
  32. DIPHENHYDRAMINE HYDROCHLORIDE [Concomitant]
     Active Substance: DIPHENHYDRAMINE HYDROCHLORIDE
  33. ZINC [Concomitant]
     Active Substance: ZINC
  34. MAGNESIUM [Concomitant]
     Active Substance: MAGNESIUM
  35. OZEMPIC [Concomitant]
     Active Substance: SEMAGLUTIDE
  36. MYRBETRIQ [Concomitant]
     Active Substance: MIRABEGRON
  37. ESTRADIOL [Concomitant]
     Active Substance: ESTRADIOL
  38. POTASSIUM [Concomitant]
     Active Substance: POTASSIUM
  39. VITAMIN B6 [Concomitant]
     Active Substance: PYRIDOXINE HYDROCHLORIDE
  40. ROSUVASTATIN [Concomitant]
     Active Substance: ROSUVASTATIN

REACTIONS (43)
  - Immunodeficiency [Unknown]
  - Pneumonia [Recovered/Resolved]
  - Nephrolithiasis [Not Recovered/Not Resolved]
  - Neuropathy peripheral [Unknown]
  - Illness [Unknown]
  - Lacrimation increased [Unknown]
  - Dehydration [Unknown]
  - Inability to afford medication [Unknown]
  - Product dose omission issue [Unknown]
  - Infusion site discharge [Unknown]
  - Eye swelling [Unknown]
  - Oropharyngeal pain [Unknown]
  - Swelling [Unknown]
  - Rash [Unknown]
  - Infusion site erythema [Unknown]
  - Infusion site pain [Unknown]
  - Fall [Unknown]
  - Sinusitis [Recovered/Resolved]
  - Ear infection [Unknown]
  - Seasonal allergy [Unknown]
  - Thyroid hormones increased [Unknown]
  - Blood immunoglobulin G decreased [Unknown]
  - Arthropathy [Unknown]
  - Upper-airway cough syndrome [Unknown]
  - Bronchospasm [Unknown]
  - Contusion [Unknown]
  - Malaise [Unknown]
  - Infusion site pruritus [Unknown]
  - Aphthous ulcer [Unknown]
  - Morton^s neuralgia [Unknown]
  - Nasopharyngitis [Unknown]
  - Device kink [Unknown]
  - Oral herpes [Unknown]
  - Bronchitis [Unknown]
  - Laryngitis [Unknown]
  - Oral fungal infection [Unknown]
  - Multiple allergies [Unknown]
  - Insurance issue [Unknown]
  - Product use issue [Unknown]
  - Post-acute COVID-19 syndrome [Recovering/Resolving]
  - Pyrexia [Unknown]
  - Cough [Recovered/Resolved]
  - Headache [Unknown]

NARRATIVE: CASE EVENT DATE: 20200429
